FAERS Safety Report 7573553-2 (Version None)
Quarter: 2011Q2

REPORT INFORMATION
  Report Type: 
  Country: None (occurrence: None)
  Receive Date: 20110621
  Receipt Date: 20110607
  Transmission Date: 20111010
  Serious: Yes (Other)
  Sender: FDA-Public Use
  Company Number: 20110445

PATIENT
  Age: 38 Year
  Sex: Female

DRUGS (7)
  1. TRACLEER [Concomitant]
  2. ALDACTONE [Concomitant]
  3. COUMADIN [Concomitant]
  4. VENOFER [Suspect]
     Indication: POLYCYTHAEMIA
     Dosage: 12-3 TIMES WEEK - 7 TREATMENTS INTRAVENOUS DRIP
     Route: 041
     Dates: start: 20110101, end: 20110607
  5. VENOFER [Suspect]
     Indication: DEFICIENCY ANAEMIA
     Dosage: 12-3 TIMES WEEK - 7 TREATMENTS INTRAVENOUS DRIP
     Route: 041
     Dates: start: 20110101, end: 20110607
  6. DIGOXIN [Concomitant]
  7. PREDNISONE [Concomitant]

REACTIONS (5)
  - HYPOAESTHESIA [None]
  - CEREBROVASCULAR ACCIDENT [None]
  - FEELING ABNORMAL [None]
  - CHEST DISCOMFORT [None]
  - DIZZINESS [None]
